FAERS Safety Report 12762717 (Version 1)
Quarter: 2016Q3

REPORT INFORMATION
  Report Type: Report from Study
  Country: US (occurrence: US)
  Receive Date: 20160920
  Receipt Date: 20160920
  Transmission Date: 20161109
  Serious: No
  Sender: FDA-Public Use
  Company Number: US-TEVA-694239USA

PATIENT
  Age: 29 Year
  Sex: Female

DRUGS (1)
  1. COPAXONE [Suspect]
     Active Substance: GLATIRAMER ACETATE
     Dosage: FORM STRENGTH: UNKNOWN

REACTIONS (9)
  - Injection site mass [Unknown]
  - Injection site rash [Unknown]
  - Injection site erythema [Unknown]
  - Drug intolerance [Unknown]
  - Injection site pain [Unknown]
  - Muscle spasms [Unknown]
  - Injection site bruising [Unknown]
  - Injection site pruritus [Unknown]
  - Rhinorrhoea [Unknown]
